FAERS Safety Report 8030279-9 (Version None)
Quarter: 2012Q1

REPORT INFORMATION
  Report Type: 
  Country: None (occurrence: None)
  Receive Date: 20120109
  Receipt Date: 20120102
  Transmission Date: 20120608
  Serious: Yes (Hospitalization, Other)
  Sender: FDA-Public Use
  Company Number: PHHY2011FR107519

PATIENT
  Sex: Male

DRUGS (5)
  1. GLEEVEC [Suspect]
     Indication: CHRONIC MYELOID LEUKAEMIA
     Dosage: 400 MG, UNK
     Route: 048
     Dates: start: 20081001, end: 20111101
  2. LASIX [Concomitant]
     Dosage: UNK UKN, UNK
  3. CHLORPROMAZINE HCL [Concomitant]
     Dosage: UNK UKN, UNK
  4. BUSPIRONE [Concomitant]
     Dosage: UNK UKN, UNK
  5. IMOVANE [Concomitant]
     Dosage: UNK UKN, UNK

REACTIONS (6)
  - MAJOR DEPRESSION [None]
  - SUICIDE ATTEMPT [None]
  - SUICIDAL IDEATION [None]
  - ASTHENIA [None]
  - ABNORMAL BEHAVIOUR [None]
  - DELIRIUM [None]
